FAERS Safety Report 7078539-2 (Version None)
Quarter: 2010Q4

REPORT INFORMATION
  Report Type: 
  Country: None (occurrence: None)
  Receive Date: 20101102
  Receipt Date: 20101021
  Transmission Date: 20110411
  Serious: Yes (Hospitalization)
  Sender: FDA-Public Use
  Company Number: PHHY2010VE71004

PATIENT
  Sex: Female

DRUGS (2)
  1. ACLASTA [Suspect]
     Indication: OSTEOPOROSIS
     Dosage: 5 MG/YEAR
     Dates: start: 20091023
  2. CALCIUM [Concomitant]
     Dosage: UNK

REACTIONS (3)
  - DIARRHOEA [None]
  - VIRAL INFECTION [None]
  - VOMITING [None]
